FAERS Safety Report 4857094-9 (Version None)
Quarter: 2005Q4

REPORT INFORMATION
  Report Type: 
  Country: None (occurrence: None)
  Receive Date: 20051219
  Receipt Date: 20041228
  Transmission Date: 20060501
  Serious: No
  Sender: FDA-Public Use
  Company Number: US-GLAXOSMITHKLINE-A0538619A

PATIENT
  Age: 33 Year
  Sex: Male

DRUGS (2)
  1. EQUATE NTS 21MG [Suspect]
     Dates: start: 20041212, end: 20041213
  2. NICODERM CQ [Suspect]
     Dates: start: 20041219, end: 20041219

REACTIONS (5)
  - DIZZINESS [None]
  - HYPERHIDROSIS [None]
  - NAUSEA [None]
  - TREMOR [None]
  - VOMITING [None]
